FAERS Safety Report 23883913 (Version 1)
Quarter: 2024Q2

REPORT INFORMATION
  Report Type: Spontaneous
  Country: TR (occurrence: TR)
  Receive Date: 20240522
  Receipt Date: 20240522
  Transmission Date: 20240716
  Serious: Yes (Other)
  Sender: FDA-Public Use
  Company Number: TR-002147023-NVSC2024TR106275

PATIENT
  Sex: Male

DRUGS (1)
  1. EXFORGE [Suspect]
     Active Substance: AMLODIPINE BESYLATE\VALSARTAN
     Indication: Blood pressure measurement
     Dosage: UNK UNK, QD (1X1) QD (5/160 MG)
     Route: 065
     Dates: start: 2018

REACTIONS (3)
  - Blood pressure abnormal [Unknown]
  - Liver injury [Unknown]
  - Weight decreased [Unknown]
